FAERS Safety Report 10066454 (Version 3)
Quarter: 2014Q2

REPORT INFORMATION
  Report Type: Report from Study
  Country: IN (occurrence: IN)
  Receive Date: 20140408
  Receipt Date: 20140616
  Transmission Date: 20141212
  Serious: Yes (Hospitalization, Other)
  Sender: FDA-Public Use
  Company Number: PHHY2014IN027264

PATIENT
  Age: 64 Year
  Sex: Female

DRUGS (4)
  1. ACLASTA [Suspect]
     Indication: OSTEOPOROSIS
     Dosage: 5 MG / 100 ML / YEAR
     Route: 042
     Dates: start: 2012
  2. ACLASTA [Suspect]
     Dosage: 5 MG / 100 ML / YEAR
     Route: 042
     Dates: start: 20130305
  3. STAMLO [Concomitant]
     Indication: HYPERTENSION
     Dosage: 5 MG, QD
     Route: 048
  4. MACALVIT [Concomitant]
     Indication: CALCIUM DEFICIENCY
     Dosage: UNK UKN, QD
     Route: 048

REACTIONS (7)
  - Hernia [Recovered/Resolved]
  - Diabetes mellitus [Not Recovered/Not Resolved]
  - Gait disturbance [Unknown]
  - Bone disorder [Unknown]
  - Joint swelling [Unknown]
  - Arthralgia [Not Recovered/Not Resolved]
  - Fatigue [Unknown]
